FAERS Safety Report 16307256 (Version 1)
Quarter: 2019Q2

REPORT INFORMATION
  Report Type: Spontaneous
  Country: US (occurrence: US)
  Receive Date: 20190514
  Receipt Date: 20190514
  Transmission Date: 20190711
  Serious: Yes (Hospitalization, Other)
  Sender: FDA-Public Use
  Company Number: US-009507513-1905USA004950

PATIENT
  Age: 79 Year
  Sex: Male

DRUGS (1)
  1. SINEMET CR [Suspect]
     Active Substance: CARBIDOPA\LEVODOPA
     Indication: PARKINSON^S DISEASE
     Dosage: 2 TABLETS 5 TIMES DAILY; STRENGTH 25/100 (UNIT UNKNOWN)
     Route: 048
     Dates: start: 2009

REACTIONS (3)
  - Pneumonia [Not Recovered/Not Resolved]
  - Product supply issue [Unknown]
  - Product dose omission [Unknown]

NARRATIVE: CASE EVENT DATE: 20190506
